FAERS Safety Report 8015848-4 (Version None)
Quarter: 2011Q4

REPORT INFORMATION
  Report Type: 
  Country: None (occurrence: None)
  Receive Date: 20111230
  Receipt Date: 20111219
  Transmission Date: 20120403
  Serious: Yes (Hospitalization)
  Sender: FDA-Public Use
  Company Number: JP-SANOFI-AVENTIS-2011SA083112

PATIENT
  Sex: Male

DRUGS (4)
  1. TAXOTERE [Suspect]
     Dosage: FORM : 2VIALS
     Route: 042
     Dates: start: 20111121
  2. TAXOTERE [Suspect]
     Indication: PROSTATE CANCER
     Dosage: FORM : 2VIALS
     Route: 042
     Dates: start: 20111121
  3. DEXAMETHASONE [Suspect]
     Indication: PROPHYLAXIS
     Route: 065
     Dates: start: 20111121
  4. RAMELTEON [Concomitant]
     Dosage: DOSE 1 A
     Dates: start: 20111121

REACTIONS (2)
  - PAIN [None]
  - PANCREATITIS [None]
